FAERS Safety Report 12884757 (Version 1)
Quarter: 2016Q4

REPORT INFORMATION
  Report Type: Report from Study
  Country: CA (occurrence: CA)
  Receive Date: 20161026
  Receipt Date: 20161026
  Transmission Date: 20170207
  Serious: Yes (Other)
  Sender: FDA-Public Use
  Company Number: CA-AMGEN-CANSL2016145349

PATIENT
  Age: 85 Year
  Sex: Female

DRUGS (1)
  1. PROLIA [Suspect]
     Active Substance: DENOSUMAB
     Indication: PRODUCT USED FOR UNKNOWN INDICATION
     Dosage: UNK, UNK
     Route: 065
     Dates: start: 20140910

REACTIONS (9)
  - Pain [Recovering/Resolving]
  - Muscle spasms [Unknown]
  - Insomnia [Unknown]
  - Pain in extremity [Recovering/Resolving]
  - Renal pain [Recovering/Resolving]
  - Back pain [Recovering/Resolving]
  - Lower limb fracture [Unknown]
  - Limb mass [Unknown]
  - Musculoskeletal chest pain [Recovering/Resolving]
